FAERS Safety Report 19321896 (Version 1)
Quarter: 2021Q2

REPORT INFORMATION
  Report Type: Spontaneous
  Country: CN (occurrence: CN)
  Receive Date: 20210528
  Receipt Date: 20210528
  Transmission Date: 20210717
  Serious: Yes (Other)
  Sender: FDA-Public Use
  Company Number: CN-JNJFOC-20210548037

PATIENT
  Age: 80 Year
  Sex: Male

DRUGS (1)
  1. XARELTO [Suspect]
     Active Substance: RIVAROXABAN
     Indication: VENOUS THROMBOSIS LIMB
     Dosage: 20 MG, QD
     Route: 048
     Dates: start: 20210502, end: 20210516

REACTIONS (4)
  - Renal failure [Unknown]
  - Product prescribing issue [Unknown]
  - Incorrect dosage administered [Unknown]
  - Hepatic failure [Unknown]

NARRATIVE: CASE EVENT DATE: 20210502
